FAERS Safety Report 9438039 (Version 1)
Quarter: 2013Q3

REPORT INFORMATION
  Report Type: Spontaneous
  Country: US (occurrence: US)
  Receive Date: 20130802
  Receipt Date: 20130802
  Transmission Date: 20140515
  Serious: No
  Sender: FDA-Public Use
  Company Number: US-BRISTOL-MYERS SQUIBB COMPANY-16728248

PATIENT
  Age: 76 Year
  Sex: Female
  Weight: 69.39 kg

DRUGS (2)
  1. COUMADIN [Suspect]
     Dates: start: 20120628
  2. VITAMIN C [Concomitant]

REACTIONS (1)
  - Ocular hyperaemia [Unknown]
